FAERS Safety Report 7810172-4 (Version None)
Quarter: 2011Q4

REPORT INFORMATION
  Report Type: 
  Country: None (occurrence: None)
  Receive Date: 20111007
  Receipt Date: 20111004
  Transmission Date: 20120403
  Serious: Yes (Death, Hospitalization, Other)
  Sender: FDA-Public Use
  Company Number: 201111289

PATIENT
  Age: 4 Year
  Sex: Male

DRUGS (1)
  1. LIORESAL [Suspect]
     Indication: MUSCLE SPASTICITY
     Dosage: 224.0 MCG, DAILY, INTRATHECAL
     Route: 037

REACTIONS (7)
  - MENTAL STATUS CHANGES [None]
  - PYREXIA [None]
  - AUTONOMIC NERVOUS SYSTEM IMBALANCE [None]
  - HYDROCEPHALUS [None]
  - BRAIN OEDEMA [None]
  - INTRACRANIAL PRESSURE INCREASED [None]
  - URINARY TRACT INFECTION [None]
